FAERS Safety Report 8298956-2 (Version None)
Quarter: 2012Q2

REPORT INFORMATION
  Report Type: 
  Country: None (occurrence: None)
  Receive Date: 20120419
  Receipt Date: 20120417
  Transmission Date: 20120825
  Serious: Yes (Death, Hospitalization)
  Sender: FDA-Public Use
  Company Number: PHHY2012MX029844

PATIENT
  Sex: Female

DRUGS (13)
  1. DIPROSPAN [Concomitant]
  2. ALPRAZOLAM [Concomitant]
     Dosage: 1 DF, DAILY
  3. ZOLEDRONOC ACID [Suspect]
     Dosage: 5 MG/100 ML, EACH YEAR
     Route: 042
     Dates: start: 20110807
  4. CHLOROPYRAMINE [Concomitant]
  5. CORTISONE ACETATE [Concomitant]
  6. ZOLEDRONOC ACID [Suspect]
     Dosage: 5 MG/100 ML, EACH YEAR
     Route: 042
     Dates: start: 20100804
  7. DIGOXIN [Concomitant]
     Dosage: 0.5 DF, QD
  8. RANITIDINE [Concomitant]
  9. PROPAFENONE HCL [Concomitant]
  10. ZOLEDRONOC ACID [Suspect]
     Indication: OSTEOPOROSIS
     Dosage: 5 MG/100 ML, EACH YEAR
     Route: 042
     Dates: start: 20080804
  11. ZOLEDRONOC ACID [Suspect]
     Dosage: 5 MG/100 ML, EACH YEAR
     Route: 042
     Dates: start: 20090804
  12. OMEPRAZOLE [Concomitant]
  13. DIOSMINE [Concomitant]
     Dosage: 1 DF, DAILY

REACTIONS (6)
  - HEAD INJURY [None]
  - PNEUMONIA [None]
  - SEPSIS [None]
  - FALL [None]
  - MULTI-ORGAN FAILURE [None]
  - WRIST FRACTURE [None]
